FAERS Safety Report 8898881 (Version 2)
Quarter: 2012Q4

REPORT INFORMATION
  Report Type: 
  Country: US (occurrence: US)
  Receive Date: 20121109
  Receipt Date: 20121123
  Transmission Date: 20130627
  Serious: Yes (Other)
  Sender: FDA-Public Use
  Company Number: US-PFIZER INC-2012279648

PATIENT
  Age: 48 Year
  Sex: Male
  Weight: 113 kg

DRUGS (5)
  1. CELEBREX [Suspect]
     Indication: SPONDYLITIS
     Dosage: 200 mg, daily
     Dates: start: 200908, end: 201108
  2. CELEBREX [Suspect]
     Indication: KNEE ARTHRITIS
     Dosage: 200 mg, daily
     Dates: start: 201109
  3. CELEBREX [Suspect]
     Indication: COXARTHRITIS
  4. HYDROCODONE [Concomitant]
     Indication: PAIN
     Dosage: 10 mg, 3x/day
  5. MORPHINE [Concomitant]
     Indication: PAIN
     Dosage: 15 mg, 2x/day

REACTIONS (3)
  - Nephrolithiasis [Recovered/Resolved]
  - Arthralgia [Recovered/Resolved]
  - Back pain [Recovered/Resolved]
